FAERS Safety Report 8600000-1 (Version None)
Quarter: 2012Q3

REPORT INFORMATION
  Report Type: 
  Country: None (occurrence: None)
  Receive Date: 20120816
  Receipt Date: 20120808
  Transmission Date: 20120928
  Serious: Yes (Death, Hospitalization)
  Sender: FDA-Public Use
  Company Number: FI-ROCHE-1099564

PATIENT
  Age: 78 Year
  Sex: Female

DRUGS (2)
  1. MABTHERA [Suspect]
     Indication: RHEUMATOID ARTHRITIS
     Route: 042
     Dates: start: 20120529
  2. MABTHERA [Suspect]
     Dosage: SECOND INFUSION
     Route: 042
     Dates: start: 20120613

REACTIONS (3)
  - RHEUMATOID ARTHRITIS [None]
  - DIARRHOEA HAEMORRHAGIC [None]
  - PULMONARY EMBOLISM [None]
